FAERS Safety Report 4721288-3 (Version None)
Quarter: 2005Q3

REPORT INFORMATION
  Report Type: 
  Country: None (occurrence: None)
  Receive Date: 20050722
  Receipt Date: 20050707
  Transmission Date: 20060218
  Serious: Yes (Other)
  Sender: FDA-Public Use
  Company Number: ES-NOVOPROD-245410

PATIENT
  Age: 54 Year
  Sex: Female

DRUGS (2)
  1. MIXTARD 30 INNOLET [Suspect]
     Indication: DIABETES MELLITUS
     Dosage: 76 IU, QD
     Route: 058
     Dates: start: 20041101
  2. TERTENSIF [Concomitant]
     Route: 048

REACTIONS (1)
  - LICHEN PLANUS [None]
